FAERS Safety Report 6253196-3 (Version None)
Quarter: 2009Q3

REPORT INFORMATION
  Report Type: 
  Country: None (occurrence: None)
  Receive Date: 20090701
  Receipt Date: 20090623
  Transmission Date: 20100115
  Serious: Yes (Hospitalization, Disabling, Other)
  Sender: FDA-Public Use
  Company Number: US-MERCK-0805USA00915

PATIENT
  Age: 55 Year
  Sex: Female

DRUGS (10)
  1. FOSAMAX [Suspect]
     Indication: BONE DISORDER
     Route: 048
     Dates: start: 20000801, end: 20051129
  2. LOPRESSOR [Concomitant]
     Indication: HYPERTENSION
     Route: 065
     Dates: start: 19880101, end: 20050101
  3. NORVASC [Concomitant]
     Indication: HYPERTENSION
     Route: 065
     Dates: start: 19880101, end: 20050101
  4. COZAAR [Concomitant]
     Indication: HYPERTENSION
     Route: 065
     Dates: start: 19960101
  5. CALCIUM (UNSPECIFIED) [Concomitant]
     Indication: OSTEOPOROSIS
     Route: 065
     Dates: start: 20010101, end: 20050101
  6. GLYBURIDE [Concomitant]
     Indication: DIABETES MELLITUS
     Route: 065
     Dates: start: 20000101, end: 20030101
  7. LIPITOR [Concomitant]
     Indication: HYPERCHOLESTEROLAEMIA
     Route: 065
     Dates: start: 19960101
  8. GLUCOVANCE [Concomitant]
     Route: 065
  9. CARDIZEM [Concomitant]
     Route: 065
  10. PRAVACHOL [Concomitant]
     Route: 065

REACTIONS (18)
  - ANGINA UNSTABLE [None]
  - ANXIETY [None]
  - BRONCHITIS [None]
  - CHEST PAIN [None]
  - CORONARY ARTERY DISEASE [None]
  - DENTAL CARIES [None]
  - DEPRESSION [None]
  - DIABETES MELLITUS [None]
  - LUNG DISORDER [None]
  - MYOCARDIAL INFARCTION [None]
  - OSTEOMYELITIS [None]
  - OSTEONECROSIS [None]
  - PARAESTHESIA [None]
  - PERIODONTITIS [None]
  - POST PROCEDURAL HAEMATOMA [None]
  - SECONDARY SEQUESTRUM [None]
  - SQUAMOUS CELL CARCINOMA [None]
  - TOOTH LOSS [None]
